FAERS Safety Report 5118870-0 (Version None)
Quarter: 2006Q3

REPORT INFORMATION
  Report Type: 
  Country: None (occurrence: None)
  Receive Date: 20060929
  Receipt Date: 20060929
  Transmission Date: 20061208
  Serious: No
  Sender: FDA-Public Use
  Company Number: None

PATIENT
  Age: 22 Year
  Sex: Male
  Weight: 97.5234 kg

DRUGS (3)
  1. LAMISIL [Suspect]
     Indication: NAIL INFECTION
     Dosage: 250 MG 1/DAY PO
     Route: 048
  2. ZYRTEC [Concomitant]
  3. SINGULAIR [Concomitant]

REACTIONS (2)
  - CONDITION AGGRAVATED [None]
  - DEPRESSION [None]
